FAERS Safety Report 19385878 (Version 1)
Quarter: 2021Q2

REPORT INFORMATION
  Report Type: Report from Study
  Country: IT (occurrence: IT)
  Receive Date: 20210608
  Receipt Date: 20210608
  Transmission Date: 20210717
  Serious: Yes (Other)
  Sender: FDA-Public Use
  Company Number: IT-TEVA-2021-IT-1919468

PATIENT
  Age: 71 Year
  Sex: Female

DRUGS (1)
  1. KETOPROFEN LYSINE [Suspect]
     Active Substance: KETOPROFEN LYSINE
     Indication: ARTHRALGIA
     Route: 065
     Dates: start: 20210510

REACTIONS (3)
  - Dysphagia [Recovering/Resolving]
  - Rash pruritic [Recovering/Resolving]
  - Face oedema [Recovering/Resolving]

NARRATIVE: CASE EVENT DATE: 20210510
